FAERS Safety Report 6415744-X (Version None)
Quarter: 2009Q4

REPORT INFORMATION
  Report Type: 
  Country: None (occurrence: None)
  Receive Date: 20091022
  Receipt Date: 20050708
  Transmission Date: 20100525
  Serious: Yes (Death, Hospitalization)
  Sender: FDA-Public Use
  Company Number: 2009008900

PATIENT
  Age: 70 Year
  Sex: Female

DRUGS (2)
  1. ACTIQ [Suspect]
     Indication: PAIN
     Dosage: 1600 MCG (1600 MCG, 1 IN 1 D), BU
     Route: 002
     Dates: end: 20050601
  2. MORPHINE [Concomitant]

REACTIONS (2)
  - DYSPNOEA [None]
  - HAEMORRHAGE INTRACRANIAL [None]
